FAERS Safety Report 21121450 (Version 2)
Quarter: 2022Q3

REPORT INFORMATION
  Report Type: Spontaneous
  Country: US (occurrence: US)
  Receive Date: 20220722
  Receipt Date: 20220809
  Transmission Date: 20221026
  Serious: Yes (Death, Other)
  Sender: FDA-Public Use
  Company Number: US-BRISTOL-MYERS SQUIBB COMPANY-2022-074782

PATIENT
  Age: 67 Year
  Sex: Male
  Weight: 74.1 kg

DRUGS (2)
  1. ABECMA [Suspect]
     Active Substance: IDECABTAGENE VICLEUCEL
     Indication: Plasma cell myeloma
     Dosage: DOSE : UNAVAILABLE;     FREQ : UNAVAILABLE
     Route: 065
     Dates: start: 20220422, end: 20220422
  2. ABECMA [Suspect]
     Active Substance: IDECABTAGENE VICLEUCEL
     Dosage: INFUSION ROUTE
     Route: 042
     Dates: start: 20220422

REACTIONS (13)
  - Plasma cell myeloma [Fatal]
  - Cytokine release syndrome [Unknown]
  - Immune effector cell-associated neurotoxicity syndrome [Unknown]
  - Arrhythmia [Unknown]
  - Fatigue [Unknown]
  - Tachycardia [Unknown]
  - Hypoalbuminaemia [Unknown]
  - Decreased appetite [Unknown]
  - Myalgia [Unknown]
  - Agitation [Unknown]
  - Diarrhoea [Unknown]
  - Alanine aminotransferase abnormal [Unknown]
  - Aspartate aminotransferase increased [Unknown]

NARRATIVE: CASE EVENT DATE: 20220423
